FAERS Safety Report 17622203 (Version 1)
Quarter: 2020Q2

REPORT INFORMATION
  Report Type: Spontaneous
  Country: US (occurrence: US)
  Receive Date: 20200403
  Receipt Date: 20200403
  Transmission Date: 20200713
  Serious: Yes (Hospitalization, Other)
  Sender: FDA-Public Use
  Company Number: None

PATIENT
  Age: 59 Year
  Sex: Female

DRUGS (19)
  1. MELOXICAM. [Concomitant]
     Active Substance: MELOXICAM
  2. DEXAMETHASON [Concomitant]
     Active Substance: DEXAMETHASONE
  3. HUMIRA [Suspect]
     Active Substance: ADALIMUMAB
     Indication: RHEUMATOID ARTHRITIS
     Dosage: ?          OTHER FREQUENCY:EVERY 2 WEEKS;?
     Route: 058
     Dates: start: 20190920
  4. OXYCO/APAP [Concomitant]
  5. DOXYCYCL HYC [Concomitant]
  6. HYDROXYCHLOR [Concomitant]
     Active Substance: HYDROXYCHLOROQUINE
  7. MUPIROCIN. [Concomitant]
     Active Substance: MUPIROCIN
  8. ANASTROZOLE. [Concomitant]
     Active Substance: ANASTROZOLE
  9. GABAPENTIN. [Concomitant]
     Active Substance: GABAPENTIN
  10. DULOXETINE. [Concomitant]
     Active Substance: DULOXETINE
  11. POT CL MICRO [Concomitant]
  12. LEVOCETIRIZI [Concomitant]
  13. CLINDAMYCIN. [Concomitant]
     Active Substance: CLINDAMYCIN
  14. MORPHINE SUL [Concomitant]
     Active Substance: MORPHINE SULFATE
  15. LISINOPRIL. [Concomitant]
     Active Substance: LISINOPRIL
  16. ROPINIROLE. [Concomitant]
     Active Substance: ROPINIROLE
  17. TIZANIDINE. [Concomitant]
     Active Substance: TIZANIDINE
  18. NEO/POLY/HC [Concomitant]
     Active Substance: HYDROCORTISONE\NEOMYCIN\POLYMYXIN B SULFATE
  19. MINOCYCLINE [Concomitant]
     Active Substance: MINOCYCLINE HYDROCHLORIDE

REACTIONS (1)
  - Surgery [None]
